FAERS Safety Report 10174818 (Version 1)
Quarter: 2014Q2

REPORT INFORMATION
  Report Type: Report from Study
  Country: CA (occurrence: CA)
  Receive Date: 20140515
  Receipt Date: 20140515
  Transmission Date: 20141212
  Serious: Yes (Other)
  Sender: FDA-Public Use
  Company Number: CA-JNJFOC-20140506509

PATIENT
  Sex: Female
  Weight: 68.1 kg

DRUGS (6)
  1. REMICADE [Suspect]
     Indication: CROHN^S DISEASE
     Route: 042
     Dates: start: 20030923
  2. AVAPRO [Concomitant]
     Route: 065
  3. IMURAN [Concomitant]
     Route: 065
  4. ZOPICLONE [Concomitant]
     Route: 065
  5. PANTOLOC [Concomitant]
     Route: 065
  6. ADALAT [Concomitant]
     Route: 065

REACTIONS (4)
  - Fistula [Unknown]
  - Crohn^s disease [Recovered/Resolved]
  - Gastrointestinal disorder [Recovered/Resolved]
  - Fatigue [Not Recovered/Not Resolved]
